FAERS Safety Report 11896060 (Version 1)
Quarter: 2016Q1

REPORT INFORMATION
  Report Type: Spontaneous
  Country: US (occurrence: US)
  Receive Date: 20160107
  Receipt Date: 20160107
  Transmission Date: 20160526
  Serious: No
  Sender: FDA-Public Use
  Company Number: US-PFIZER INC-2015453875

PATIENT
  Sex: Female

DRUGS (3)
  1. LYRICA [Suspect]
     Active Substance: PREGABALIN
     Indication: CENTRAL PAIN SYNDROME
     Dosage: 150 MG, 1X/DAY
  2. LYRICA [Suspect]
     Active Substance: PREGABALIN
     Indication: FIBROMYALGIA
     Dosage: 50 MG, 3X/DAY
  3. LYRICA [Suspect]
     Active Substance: PREGABALIN
     Indication: IRRITABLE BOWEL SYNDROME
     Dosage: UNK, 2X/DAY

REACTIONS (6)
  - Drug ineffective [Unknown]
  - Paraesthesia [Unknown]
  - Euphoric mood [Unknown]
  - Dizziness [Unknown]
  - Memory impairment [Unknown]
  - Movement disorder [Unknown]
